FAERS Safety Report 11018460 (Version 2)
Quarter: 2015Q2

REPORT INFORMATION
  Report Type: Spontaneous
  Country: US (occurrence: US)
  Receive Date: 20150412
  Receipt Date: 20150524
  Transmission Date: 20150821
  Serious: Yes (Other)
  Sender: FDA-Public Use
  Company Number: US-JNJFOC-20130609136

PATIENT

DRUGS (7)
  1. VINCRISTINE [Suspect]
     Active Substance: VINCRISTINE
     Indication: SARCOMA
     Dosage: ON DAY 1, 8 AND 15
     Route: 042
  2. ETOPOSIDE. [Suspect]
     Active Substance: ETOPOSIDE
     Indication: SARCOMA
     Dosage: OVER 1 HOUR FOR 5 DAYS
     Route: 042
  3. IFOSFAMIDE. [Suspect]
     Active Substance: IFOSFAMIDE
     Indication: SARCOMA
     Dosage: OVER 1 HOUR FOR 5 DAYS
     Route: 042
  4. MESNA. [Concomitant]
     Active Substance: MESNA
     Indication: PROPHYLAXIS
     Dosage: IN FOUR DOSES BY CONTINUOUS INFUSION OR BOLUS AT REGULAR INTERVALS
     Route: 042
  5. DOXORUBICIN [Suspect]
     Active Substance: DOXORUBICIN
     Indication: SARCOMA
     Dosage: OVER 48 HOURS ON DAY 1
     Route: 042
  6. FILGRASTIM [Suspect]
     Active Substance: FILGRASTIM
     Indication: COLONY STIMULATING FACTOR THERAPY
     Dosage: GENERALLY, DAY 4 IN CYCLES 1 AND 3 AND DAY 6 IN CYCLES 2 AND 4
     Route: 058
  7. CYCLOPHOSPHAMIDE. [Suspect]
     Active Substance: CYCLOPHOSPHAMIDE
     Indication: SARCOMA
     Dosage: ON DAY 1 AND 2 OVER 1 HOUR
     Route: 042

REACTIONS (3)
  - Neutropenia [Unknown]
  - Product use issue [Unknown]
  - Diarrhoea [Unknown]
